FAERS Safety Report 25987966 (Version 2)
Quarter: 2025Q4

REPORT INFORMATION
  Report Type: Spontaneous
  Country: US (occurrence: US)
  Receive Date: 20251103
  Receipt Date: 20251226
  Transmission Date: 20260118
  Serious: No
  Sender: STALLERGENES
  Company Number: US-STALCOR-2025-AER-02823

PATIENT
  Age: 1 Year
  Sex: Male

DRUGS (3)
  1. PALFORZIA [Suspect]
     Active Substance: PEANUT
     Indication: Food allergy
     Dosage: DISPENSED ON 18-SEP-2025, WAS STARTED IN CLINIC ON 25-SEP-2025 (REACTIVE DOSE)
     Route: 048
  2. PALFORZIA [Suspect]
     Active Substance: PEANUT
     Dosage: DOSE WAS HELD AND REDUCED DOSE AT 3MG WAS STARTED ON 28-SEP-2025 FOR 3 DAYS IN RESPONSE TO THE REPOR
     Route: 048
     Dates: start: 20250928
  3. ZYRTEC [Concomitant]
     Active Substance: CETIRIZINE HYDROCHLORIDE
     Indication: Product used for unknown indication
     Dosage: 5 MILLIGRAM /5 MILLILITER

REACTIONS (3)
  - Post-tussive vomiting [Recovered/Resolved]
  - Cough [Recovered/Resolved]
  - Therapy interrupted [Recovered/Resolved]

NARRATIVE: CASE EVENT DATE: 20250925
